FAERS Safety Report 4532983-3 (Version None)
Quarter: 2004Q4

REPORT INFORMATION
  Report Type: 
  Country: None (occurrence: None)
  Receive Date: 20041220
  Receipt Date: 20041220
  Transmission Date: 20050328
  Serious: Yes (Other)
  Sender: FDA-Public Use
  Company Number: None

PATIENT
  Age: 49 Year
  Sex: Female
  Weight: 72.5755 kg

DRUGS (15)
  1. CYMBALTA [Suspect]
     Indication: DYSTHYMIC DISORDER
     Dosage: 60 MG ONCE DAILY ORAL
     Route: 048
     Dates: start: 20041117, end: 20041210
  2. CYMBALTA [Suspect]
     Indication: MAJOR DEPRESSION
     Dosage: 60 MG ONCE DAILY ORAL
     Route: 048
     Dates: start: 20041117, end: 20041210
  3. CYMBALTA [Suspect]
     Indication: PAIN
     Dosage: 60 MG ONCE DAILY ORAL
     Route: 048
     Dates: start: 20041117, end: 20041210
  4. WELLBUTRIN XL [Concomitant]
  5. BUSPAR [Concomitant]
  6. KLONOPIN [Concomitant]
  7. NEURONTIN [Concomitant]
  8. AMBIEN [Concomitant]
  9. CELEBREX [Concomitant]
  10. ZANAFLEX [Concomitant]
  11. BIEST [Concomitant]
  12. PROGESTERONE [Concomitant]
  13. IMITREX [Concomitant]
  14. ALLEGRA [Concomitant]
  15. LIDODERM [Concomitant]

REACTIONS (5)
  - ABDOMINAL PAIN UPPER [None]
  - CHEST PAIN [None]
  - ERUCTATION [None]
  - OESOPHAGEAL PAIN [None]
  - REGURGITATION OF FOOD [None]
